APPROVED DRUG PRODUCT: CARBOPLATIN
Active Ingredient: CARBOPLATIN
Strength: 600MG/60ML (10MG/ML)
Dosage Form/Route: INJECTABLE;INTRAVENOUS
Application: A091063 | Product #004
Applicant: PHARMOBEDIENT CONSULTING LLC
Approved: Nov 9, 2011 | RLD: No | RS: No | Type: DISCN